FAERS Safety Report 20902074 (Version 7)
Quarter: 2022Q3

REPORT INFORMATION
  Report Type: Report from Study
  Country: IL (occurrence: IL)
  Receive Date: 20220601
  Receipt Date: 20220823
  Transmission Date: 20221027
  Serious: Yes (Death, Hospitalization)
  Sender: FDA-Public Use
  Company Number: IL-ADC THERAPEUTICS SA-ADC-2022-000071

PATIENT
  Age: 76 Year
  Sex: Male
  Weight: 100 kg

DRUGS (3)
  1. LONCASTUXIMAB TESIRINE [Suspect]
     Active Substance: LONCASTUXIMAB TESIRINE
     Indication: Diffuse large B-cell lymphoma
     Dosage: 150 MICROGRAM/KILOGRAM, Q3WK
     Route: 042
     Dates: start: 20220411, end: 20220501
  2. LONCASTUXIMAB TESIRINE [Suspect]
     Active Substance: LONCASTUXIMAB TESIRINE
     Dosage: 75 MICROGRAM/KILOGRAM, Q3WK
     Route: 042
     Dates: start: 20220612, end: 20220703
  3. RITUXIMAB [Suspect]
     Active Substance: RITUXIMAB
     Indication: Diffuse large B-cell lymphoma
     Dosage: 375 MG/M2, Q3WK
     Route: 042
     Dates: start: 20220411, end: 20220703

REACTIONS (4)
  - Pneumonia [Recovered/Resolved]
  - Septic shock [Fatal]
  - Pyrexia [Recovered/Resolved]
  - Pneumonia [Not Recovered/Not Resolved]

NARRATIVE: CASE EVENT DATE: 20220506
